FAERS Safety Report 24984499 (Version 1)
Quarter: 2025Q1

REPORT INFORMATION
  Report Type: Report from Study
  Country: US (occurrence: US)
  Receive Date: 20250219
  Receipt Date: 20250219
  Transmission Date: 20250408
  Serious: Yes (Other)
  Sender: ABBVIE
  Company Number: US-ABBVIE-6133863

PATIENT
  Age: 73 Year
  Sex: Female

DRUGS (1)
  1. VENCLEXTA [Suspect]
     Active Substance: VENETOCLAX
     Indication: Acute myeloid leukaemia
     Dosage: TAKE ONE TABLET DAILY. DO NOT CHEW, CRUSH, OR BREAK TABLETS. TAKE WITH FOOD.
     Route: 048

REACTIONS (4)
  - Embolism venous [Unknown]
  - Essential hypertension [Unknown]
  - Neutropenia [Unknown]
  - Off label use [Unknown]
